FAERS Safety Report 14853301 (Version 2)
Quarter: 2018Q3

REPORT INFORMATION
  Report Type: Other
  Country: DK (occurrence: DK)
  Receive Date: 20180507
  Receipt Date: 20180717
  Transmission Date: 20181010
  Serious: Yes (Hospitalization)
  Sender: FDA-Public Use
  Company Number: DK-CELLTRION INC.-2018DK019542

PATIENT

DRUGS (5)
  1. INFLECTRA                          /01445601/ [Suspect]
     Active Substance: INFLIXIMAB
     Indication: PSORIATIC ARTHROPATHY
     Dosage: 400 MG,8 WEEK
     Route: 042
     Dates: start: 20171205, end: 20171205
  2. REMSIMA [Suspect]
     Active Substance: INFLIXIMAB
     Indication: PSORIATIC ARTHROPATHY
     Dosage: 400 MG WEEK 0, 2, 6, +8
     Route: 042
     Dates: start: 20170831, end: 20170831
  3. REMSIMA [Suspect]
     Active Substance: INFLIXIMAB
     Dosage: 100 MG, EVERY 2 MONTHS
     Route: 042
     Dates: start: 20180130, end: 20180130
  4. REMSIMA [Suspect]
     Active Substance: INFLIXIMAB
     Dosage: 400 MG WEEK 0, 2, 6, +8
     Route: 042
     Dates: start: 20171205, end: 20171205
  5. INFLECTRA                          /01445601/ [Suspect]
     Active Substance: INFLIXIMAB
     Dosage: 400 MG,8 WEEK
     Route: 042
     Dates: start: 20180328, end: 20180328

REACTIONS (3)
  - Pustular psoriasis [Not Recovered/Not Resolved]
  - Underdose [Unknown]
  - Alopecia [Not Recovered/Not Resolved]

NARRATIVE: CASE EVENT DATE: 20180222
